FAERS Safety Report 9880412 (Version 1)
Quarter: 2014Q1

REPORT INFORMATION
  Report Type: Spontaneous
  Country: CA (occurrence: None)
  Receive Date: 20140206
  Receipt Date: 20140206
  Transmission Date: 20141002
  Serious: Yes (Hospitalization)
  Sender: FDA-Public Use
  Company Number: None

PATIENT
  Age: 32 Year
  Sex: Female
  Weight: 61.24 kg

DRUGS (2)
  1. LOREAL PARIS SUBLIME SUN ADVANCED SUNSCREEN SPF 50 PLUS [Suspect]
     Indication: SUNBURN
     Dates: start: 20140204, end: 20140204
  2. LOREAL PARIS SUBLIME SUN ADVANCED SUNSCREEN SPF 50 PLUS [Suspect]
     Indication: PROPHYLAXIS
     Dates: start: 20140204, end: 20140204

REACTIONS (3)
  - Eye pain [None]
  - Chemical burns of eye [None]
  - Visual acuity reduced [None]
